FAERS Safety Report 6992921-0 (Version None)
Quarter: 2010Q3

REPORT INFORMATION
  Report Type: 
  Country: None (occurrence: None)
  Receive Date: 20100917
  Receipt Date: 20100907
  Transmission Date: 20110219
  Serious: Yes (Other)
  Sender: FDA-Public Use
  Company Number: US-PFIZER INC-2009164938

PATIENT
  Sex: Female
  Weight: 81.633 kg

DRUGS (9)
  1. NEURONTIN [Suspect]
     Indication: NEUROPATHY PERIPHERAL
     Dosage: 400 MG, 3X/DAY
     Route: 048
  2. NEURONTIN [Suspect]
     Indication: NERVE INJURY
     Dosage: 400 MG FIVE TIMES A DAY
     Route: 048
  3. LIPITOR [Suspect]
     Indication: BLOOD CHOLESTEROL INCREASED
     Dosage: 10 MG, DAILY
     Route: 048
  4. DETROL LA [Suspect]
     Indication: POLLAKIURIA
     Dosage: 4 MG, 1X/DAY
     Dates: end: 20080101
  5. DETROL LA [Suspect]
     Dosage: 4 MG, DAILY
     Route: 048
     Dates: end: 20080101
  6. VITAMIN B-12 [Suspect]
     Indication: PERNICIOUS ANAEMIA
     Dosage: UNK
  7. GLUCOPHAGE [Concomitant]
     Dosage: UNK
  8. FOSAMAX [Concomitant]
     Dosage: UNK
  9. CALCIUM WITH VITAMIN D [Concomitant]
     Dosage: UNK

REACTIONS (11)
  - ARTHRITIS [None]
  - BALANCE DISORDER [None]
  - CARTILAGE INJURY [None]
  - DIZZINESS [None]
  - DRUG INEFFECTIVE [None]
  - FACIAL PAIN [None]
  - GAIT DISTURBANCE [None]
  - NERVE INJURY [None]
  - PAIN IN EXTREMITY [None]
  - PARAESTHESIA [None]
  - SWELLING FACE [None]
